FAERS Safety Report 5752349-8 (Version None)
Quarter: 2008Q2

REPORT INFORMATION
  Report Type: 
  Country: None (occurrence: None)
  Receive Date: 20080529
  Receipt Date: 20080523
  Transmission Date: 20081010
  Serious: Yes (Other)
  Sender: FDA-Public Use
  Company Number: GB-TEVA-171973ISR

PATIENT
  Age: 48 Year
  Sex: Male

DRUGS (1)
  1. SIMVASTATIN [Suspect]

REACTIONS (1)
  - SENSATION OF FOREIGN BODY [None]
